FAERS Safety Report 23758203 (Version 3)
Quarter: 2024Q3

REPORT INFORMATION
  Report Type: Spontaneous
  Country: US (occurrence: US)
  Receive Date: 20240418
  Receipt Date: 20240814
  Transmission Date: 20241016
  Serious: No
  Sender: CALLIDITAS THERAPEUTICS
  Company Number: US-Calliditas-2024CAL00582

PATIENT
  Age: 70 Year
  Sex: Male

DRUGS (2)
  1. TARPEYO [Suspect]
     Active Substance: BUDESONIDE
     Indication: IgA nephropathy
     Dosage: 16MG (4MG CAPSULES) ONCE DAILY
     Route: 048
     Dates: start: 20240313
  2. BUMETANIDE [Concomitant]
     Active Substance: BUMETANIDE

REACTIONS (7)
  - Asthenia [Unknown]
  - Fatigue [Unknown]
  - Dizziness postural [Recovering/Resolving]
  - Peripheral swelling [Unknown]
  - Increased tendency to bruise [Unknown]
  - Weight decreased [Unknown]
  - Hypotension [Unknown]
